FAERS Safety Report 11179705 (Version 1)
Quarter: 2015Q2

REPORT INFORMATION
  Report Type: Report from Study
  Country: GB (occurrence: GB)
  Receive Date: 20150611
  Receipt Date: 20150611
  Transmission Date: 20150821
  Serious: Yes (Hospitalization)
  Sender: FDA-Public Use
  Company Number: GB-ACCORD-031207

PATIENT
  Age: 78 Year
  Sex: Male
  Weight: 63.7 kg

DRUGS (11)
  1. RIVAROXABAN [Concomitant]
     Active Substance: RIVAROXABAN
     Indication: ATRIAL FIBRILLATION
     Route: 065
     Dates: start: 20141202
  2. BISOPROLOL [Suspect]
     Active Substance: BISOPROLOL
     Indication: HYPERTENSION
     Dosage: PATIENT TOOK MOST RECENT DOSE ON 29-APR-2015
     Route: 065
     Dates: start: 20111006
  3. BUMETANIDE. [Suspect]
     Active Substance: BUMETANIDE
     Indication: OEDEMA
     Dosage: PATIENT TOOK MOST RECENT DOSE ON 29-APR-2015
     Route: 065
     Dates: start: 20150323
  4. TAMSULOSIN/TAMSULOSIN HYDROCHLORIDE [Suspect]
     Active Substance: TAMSULOSIN HYDROCHLORIDE
     Indication: URINARY RETENTION
     Dosage: PATIENT TOOK MOST RECENT DOSE ON 29-APR-2015
     Route: 065
     Dates: start: 20150202
  5. FINASTERIDE. [Suspect]
     Active Substance: FINASTERIDE
     Indication: BENIGN PROSTATIC HYPERPLASIA
     Dosage: PATIENT TOOK MOST RECENT DOSE ON 29-APR-2015
     Route: 065
     Dates: start: 20010806
  6. PLACEBO [Suspect]
     Active Substance: UNSPECIFIED INGREDIENT
     Indication: PRODUCT USED FOR UNKNOWN INDICATION
  7. ISOSORBIDE [Suspect]
     Active Substance: ISOSORBIDE
     Indication: PROPHYLAXIS
     Dosage: PATIENT TOOK MOST RECENT DOSE ON 29-APR-2015
     Route: 065
     Dates: start: 20110315
  8. INDORAMIN [Suspect]
     Active Substance: INDORAMIN
     Indication: PROPHYLAXIS
     Dosage: PATIENT TOOK MOST RECENT DOSE ON 29-APR-2015
     Route: 065
     Dates: start: 19971112
  9. ACZ885 [Suspect]
     Active Substance: CANAKINUMAB
     Indication: CARDIOVASCULAR EVENT PROPHYLAXIS
     Dosage: CODE NOT BROKEN
     Route: 058
     Dates: start: 20130102
  10. SPIRONOLACTONE. [Suspect]
     Active Substance: SPIRONOLACTONE
     Indication: OEDEMA
     Dosage: PATIENT TOOK MOST RECENT DOSE ON 29-APR-2015
     Route: 065
     Dates: start: 20150325
  11. ATORVASTATIN [Concomitant]
     Active Substance: ATORVASTATIN
     Indication: HYPERCHOLESTEROLAEMIA
     Route: 065
     Dates: start: 20111209

REACTIONS (2)
  - Laceration [Recovered/Resolved]
  - Fall [Unknown]

NARRATIVE: CASE EVENT DATE: 20150429
